FAERS Safety Report 7092231-X (Version None)
Quarter: 2010Q4

REPORT INFORMATION
  Report Type: 
  Country: None (occurrence: None)
  Receive Date: 20101109
  Receipt Date: 20101029
  Transmission Date: 20110411
  Serious: Yes (Life-Threatening, Hospitalization)
  Sender: FDA-Public Use
  Company Number: FR-GENENTECH-308166

PATIENT
  Sex: Male
  Weight: 70 kg

DRUGS (9)
  1. MABTHERA [Suspect]
     Indication: HAEMOLYTIC ANAEMIA
     Dosage: 650 MG, 1/WEEK
     Route: 042
     Dates: start: 20100927, end: 20101019
  2. CORTANCYL [Suspect]
     Indication: ANAEMIA HAEMOLYTIC AUTOIMMUNE
     Dosage: 1 MG/KG, UNK
     Route: 048
     Dates: start: 20100701
  3. CORTANCYL [Suspect]
     Dosage: UNK
     Route: 048
     Dates: start: 20101012
  4. SPECIAFOLDINE [Concomitant]
     Indication: PRODUCT USED FOR UNKNOWN INDICATION
     Dosage: 5 MG, UNK
     Route: 048
  5. ACTONEL [Concomitant]
     Indication: PRODUCT USED FOR UNKNOWN INDICATION
     Dosage: UNK
     Route: 048
     Dates: start: 20101012
  6. VASTAREL [Concomitant]
     Indication: PRODUCT USED FOR UNKNOWN INDICATION
     Route: 048
  7. NITROGLYCERIN [Concomitant]
     Indication: PRODUCT USED FOR UNKNOWN INDICATION
     Route: 050
  8. NEXIUM [Concomitant]
     Indication: PRODUCT USED FOR UNKNOWN INDICATION
     Dosage: UNK
     Route: 048
     Dates: start: 20100701
  9. NEXIUM [Concomitant]
     Dosage: UNK
     Route: 048
     Dates: start: 20101012

REACTIONS (1)
  - VENOUS THROMBOSIS LIMB [None]
